FAERS Safety Report 9433753 (Version 1)
Quarter: 2013Q3

REPORT INFORMATION
  Report Type: Spontaneous
  Country: US (occurrence: None)
  Receive Date: 20130729
  Receipt Date: 20130729
  Transmission Date: 20140515
  Serious: Yes (Other)
  Sender: FDA-Public Use
  Company Number: SYM-2013-07321

PATIENT
  Age: 54 Year
  Sex: Female

DRUGS (7)
  1. XENAZINE [Suspect]
     Indication: TARDIVE DYSKINESIA
     Route: 048
     Dates: start: 2010, end: 201306
  2. CLOZARIL (CLOZAPINE) (CLOZAPINE) [Concomitant]
  3. TOPAMAX (TOPIRMATE) (TOPIRAMATE) [Concomitant]
  4. XANAX [Concomitant]
  5. WELLBURTIN (BUPROPION HYDROCHLORIDE) (BUPROPION HYDROCHLORIDE) [Concomitant]
  6. LEVOXYL (LEVOTHYROXINE SODIUM) (LEVOTHYROXINE SODIUM) [Concomitant]
  7. DDAVP (DESMOPRESSIN) (DESMOPRESSIN) [Concomitant]

REACTIONS (8)
  - Depression [None]
  - Tremor [None]
  - Irritability [None]
  - Insomnia [None]
  - Hyperhidrosis [None]
  - Musculoskeletal stiffness [None]
  - Mental impairment [None]
  - Incorrect dose administered [None]
